FAERS Safety Report 14831776 (Version 1)
Quarter: 2018Q2

REPORT INFORMATION
  Report Type: Spontaneous
  Country: US (occurrence: US)
  Receive Date: 20180408
  Receipt Date: 20180408
  Transmission Date: 20180711
  Serious: Yes (Life-Threatening)
  Sender: FDA-Public Use
  Company Number: None

PATIENT
  Age: 60 Year
  Sex: Male

DRUGS (1)
  1. SULFAMETHOXAZOLE/TMP [Suspect]
     Active Substance: SULFAMETHOXAZOLE\TRIMETHOPRIM
     Route: 048
     Dates: start: 20180402, end: 20180402

REACTIONS (2)
  - Hypersensitivity [None]
  - Purulent discharge [None]

NARRATIVE: CASE EVENT DATE: 20180402
